FAERS Safety Report 4732811-7 (Version None)
Quarter: 2005Q3

REPORT INFORMATION
  Report Type: 
  Country: None (occurrence: None)
  Receive Date: 20050801
  Receipt Date: 20050719
  Transmission Date: 20060218
  Serious: Yes (Death, Hospitalization)
  Sender: FDA-Public Use
  Company Number: 2005096774

PATIENT
  Age: 78 Year
  Sex: Female

DRUGS (2)
  1. XALATAN [Suspect]
     Indication: GLAUCOMA
     Dosage: UNKNOWN (UNK, SINGLE INTERVAL: EVERYDAY)
     Dates: start: 19991008, end: 20040901
  2. DEXAMETHASONE [Suspect]
     Indication: NERVOUS SYSTEM DISORDER
     Dates: start: 20040901

REACTIONS (5)
  - CEREBRAL DISORDER [None]
  - DIVERTICULITIS [None]
  - GASTRIC DISORDER [None]
  - GASTROINTESTINAL DISORDER [None]
  - UNEVALUABLE EVENT [None]
